FAERS Safety Report 6144969-6 (Version None)
Quarter: 2009Q2

REPORT INFORMATION
  Report Type: 
  Country: None (occurrence: None)
  Receive Date: 20090402
  Receipt Date: 20090126
  Transmission Date: 20091009
  Serious: No
  Sender: FDA-Public Use
  Company Number: 1000004626

PATIENT
  Age: 32 Year
  Sex: Male

DRUGS (3)
  1. BYSTOLIC [Suspect]
     Indication: ARRHYTHMIA
     Dosage: 5 MG (5 MG, 1 IN 1 D), ORAL
     Route: 048
  2. BYSTOLIC [Suspect]
     Indication: HYPERTENSION
     Dosage: 5 MG (5 MG, 1 IN 1 D), ORAL
     Route: 048
  3. SIMVASTATIN [Concomitant]

REACTIONS (2)
  - PRURITUS [None]
  - RASH [None]
